FAERS Safety Report 6884395-5 (Version None)
Quarter: 2010Q3

REPORT INFORMATION
  Report Type: 
  Country: None (occurrence: None)
  Receive Date: 20100729
  Receipt Date: 20040105
  Transmission Date: 20110219
  Serious: No
  Sender: FDA-Public Use
  Company Number: US-PFIZER INC-2007061273

PATIENT
  Sex: Female

DRUGS (2)
  1. CELEBREX [Suspect]
  2. NEURONTIN [Suspect]

REACTIONS (1)
  - ARTHRALGIA [None]
